FAERS Safety Report 6388327-8 (Version None)
Quarter: 2009Q4

REPORT INFORMATION
  Report Type: 
  Country: None (occurrence: None)
  Receive Date: 20091005
  Receipt Date: 20090929
  Transmission Date: 20100525
  Serious: Yes (Hospitalization)
  Sender: FDA-Public Use
  Company Number: GB-MERCK-0910GBR00002

PATIENT
  Age: 22 Year
  Sex: Female

DRUGS (4)
  1. CANCIDAS [Suspect]
     Indication: INFECTION
     Route: 042
     Dates: start: 20090701
  2. OSELTAMIVIR [Suspect]
     Indication: INFLUENZA
     Route: 065
     Dates: start: 20090705
  3. MEROPENEM [Suspect]
     Indication: INFECTION
     Route: 065
  4. TEICOPLANIN [Suspect]
     Route: 065

REACTIONS (4)
  - DRUG INEFFECTIVE [None]
  - LYMPHOPENIA [None]
  - NEUTROPENIA [None]
  - PNEUMONITIS [None]
